FAERS Safety Report 4631526-3 (Version None)
Quarter: 2005Q2

REPORT INFORMATION
  Report Type: 
  Country: None (occurrence: None)
  Receive Date: 20050407
  Receipt Date: 20050325
  Transmission Date: 20051028
  Serious: Yes (Other)
  Sender: FDA-Public Use
  Company Number: US014984

PATIENT
  Age: 34 Year
  Sex: Female
  Weight: 120.2032 kg

DRUGS (3)
  1. GABITRIL [Suspect]
     Indication: ANXIETY
     Dosage: 4 MG QD ORAL
     Route: 048
     Dates: start: 20050101, end: 20050120
  2. GABITRIL [Suspect]
     Indication: ANXIETY
     Dosage: 8 MG BID ORAL
     Route: 048
     Dates: start: 20050121, end: 20050211
  3. TOPAMAX [Concomitant]

REACTIONS (15)
  - ABNORMAL BEHAVIOUR [None]
  - AGGRESSION [None]
  - ALCOHOL USE [None]
  - AMNESIA [None]
  - BIPOLAR DISORDER [None]
  - CONDITION AGGRAVATED [None]
  - CONVULSION [None]
  - DEPRESSED LEVEL OF CONSCIOUSNESS [None]
  - DYSARTHRIA [None]
  - EXCORIATION [None]
  - FEELING DRUNK [None]
  - HYPOAESTHESIA [None]
  - INITIAL INSOMNIA [None]
  - MYDRIASIS [None]
  - URINARY INCONTINENCE [None]
